FAERS Safety Report 21780759 (Version 2)
Quarter: 2023Q1

REPORT INFORMATION
  Report Type: Report from Study
  Country: GR (occurrence: GR)
  Receive Date: 20221227
  Receipt Date: 20230104
  Transmission Date: 20230417
  Serious: Yes (Hospitalization)
  Sender: FDA-Public Use
  Company Number: GR-ABBVIE-22K-066-4509622-00

PATIENT
  Sex: Male
  Weight: 64 kg

DRUGS (8)
  1. CARBIDOPA\LEVODOPA [Suspect]
     Active Substance: CARBIDOPA\LEVODOPA
     Indication: Parkinson^s disease
     Dosage: MORNING DOSE: 3.0 ML; CONTINUOUS RATE: 3.5 ML/H; EXTRA DOSE: 1.5 ML; 24H ADMINISTRATION
     Route: 050
     Dates: start: 20190225
  2. CARBIDOPA\LEVODOPA [Suspect]
     Active Substance: CARBIDOPA\LEVODOPA
     Dosage: MORNING DOSE: 3.0ML; CONTINUOUS RATE: 3.5ML/H; EXTRA DOSE: 1.5ML; 24H ADMINISTRATION
     Route: 050
  3. TROFOCARD [Concomitant]
     Indication: Product used for unknown indication
     Dosage: UNIT DOSE: 60.77 MG?1 X 1 (IN THE MORNING)
     Route: 048
  4. NIMESULIDE [Concomitant]
     Active Substance: NIMESULIDE
     Indication: Muscle spasms
     Route: 048
  5. LOSEC [Concomitant]
     Active Substance: OMEPRAZOLE
     Indication: Product used for unknown indication
     Dosage: 1 X 1 (IN THE MORNING)
     Route: 048
  6. FOLIC ACID [Concomitant]
     Active Substance: FOLIC ACID
     Indication: Product used for unknown indication
     Route: 048
  7. AZILECT [Concomitant]
     Active Substance: RASAGILINE MESYLATE
     Indication: Insomnia
     Dosage: 1 X 1 (IN THE MORNING)
     Route: 048
  8. QUETIAPINE [Concomitant]
     Active Substance: QUETIAPINE
     Indication: Insomnia
     Dosage: 3 TIMES DAILY (AT NIGHT)
     Route: 048

REACTIONS (3)
  - Hypoaesthesia [Not Recovered/Not Resolved]
  - Stoma site pain [Not Recovered/Not Resolved]
  - Polyneuropathy [Unknown]
